FAERS Safety Report 25089159 (Version 1)
Quarter: 2025Q1

REPORT INFORMATION
  Report Type: Spontaneous
  Country: PL (occurrence: PL)
  Receive Date: 20250318
  Receipt Date: 20250318
  Transmission Date: 20250409
  Serious: Yes (Hospitalization, Other)
  Sender: SANOFI AVENTIS
  Company Number: PL-DialogSolutions-SAAVPROD-PI747650-C1

PATIENT
  Age: 76 Year
  Sex: Male

DRUGS (3)
  1. DUPILUMAB [Suspect]
     Active Substance: DUPILUMAB
     Indication: Dermatitis atopic
  2. DEFLAZACORT [Concomitant]
     Active Substance: DEFLAZACORT
     Indication: Dermatitis atopic
     Dosage: 6 MG, QD
  3. DEFLAZACORT [Concomitant]
     Active Substance: DEFLAZACORT
     Dates: end: 2023

REACTIONS (15)
  - Cutaneous T-cell lymphoma [Unknown]
  - Dermatitis exfoliative generalised [Unknown]
  - Condition aggravated [Unknown]
  - Face oedema [Unknown]
  - Oedema peripheral [Unknown]
  - Cutaneous symptom [Unknown]
  - Erythema [Unknown]
  - Skin lesion [Unknown]
  - Xerosis [Unknown]
  - Lichenification [Unknown]
  - Leukocytosis [Unknown]
  - Lymphocytosis [Unknown]
  - Skin plaque [Unknown]
  - Lymphocytic infiltration [Unknown]
  - Abscess [Unknown]
